FAERS Safety Report 14381981 (Version 1)
Quarter: 2018Q1

REPORT INFORMATION
  Report Type: Spontaneous
  Country: AT (occurrence: AT)
  Receive Date: 20180112
  Receipt Date: 20180112
  Transmission Date: 20180509
  Serious: Yes (Other)
  Sender: FDA-Public Use
  Company Number: PHHY2016AT185971

PATIENT
  Age: 39 Year
  Sex: Male

DRUGS (17)
  1. OLANZAPINE. [Suspect]
     Active Substance: OLANZAPINE
     Indication: ACUTE PSYCHOSIS
     Dosage: 10 MG, UNK
     Route: 048
  2. ABILIFY [Suspect]
     Active Substance: ARIPIPRAZOLE
     Indication: ACUTE PSYCHOSIS
     Dosage: 30 MG, UNK
     Route: 048
     Dates: start: 20160420, end: 20160421
  3. TRUXAL [Suspect]
     Active Substance: CHLORPROTHIXENE
     Dosage: 160 MG, UNK
     Route: 048
  4. ABILIFY [Suspect]
     Active Substance: ARIPIPRAZOLE
     Dosage: 20 MG, UNK
     Route: 048
     Dates: start: 20160422, end: 20160506
  5. TRUXAL [Suspect]
     Active Substance: CHLORPROTHIXENE
     Indication: ACUTE PSYCHOSIS
     Dosage: 200 MG, UNK
     Route: 048
     Dates: start: 20160424, end: 20160424
  6. TRUXAL [Suspect]
     Active Substance: CHLORPROTHIXENE
     Dosage: 200 MG, UNK
     Route: 048
     Dates: start: 20160506
  7. ZYPREXA [Suspect]
     Active Substance: OLANZAPINE
     Indication: ACUTE PSYCHOSIS
     Dosage: 10 MG, UNK
     Route: 048
  8. XANOR [Concomitant]
     Active Substance: ALPRAZOLAM
     Indication: PRODUCT USED FOR UNKNOWN INDICATION
     Dosage: 1 MG, UNK
     Route: 065
  9. ALPRAZOLAM. [Concomitant]
     Active Substance: ALPRAZOLAM
     Indication: PRODUCT USED FOR UNKNOWN INDICATION
     Dosage: 1 MG, UNK
     Route: 065
  10. ABILIFY [Suspect]
     Active Substance: ARIPIPRAZOLE
     Dosage: 30 MG, UNK
     Route: 048
  11. TRUXAL [Suspect]
     Active Substance: CHLORPROTHIXENE
     Dosage: 400 MG, UNK
     Route: 048
     Dates: start: 20160426, end: 20160505
  12. TRUXAL [Suspect]
     Active Substance: CHLORPROTHIXENE
     Dosage: 150 MG, UNK
     Route: 048
  13. ABILIFY [Suspect]
     Active Substance: ARIPIPRAZOLE
     Dosage: 20 MG, UNK
     Route: 048
     Dates: start: 20160527
  14. OLANZAPINE. [Suspect]
     Active Substance: OLANZAPINE
     Dosage: 20 MG, UNK
     Route: 048
  15. ABILIFY [Suspect]
     Active Substance: ARIPIPRAZOLE
     Dosage: 30 MG, UNK
     Route: 048
     Dates: start: 20160507, end: 20160526
  16. TRUXAL [Suspect]
     Active Substance: CHLORPROTHIXENE
     Dosage: 250 MG, UNK
     Route: 048
     Dates: start: 20160425, end: 20160425
  17. ZYPREXA [Suspect]
     Active Substance: OLANZAPINE
     Dosage: 20 MG, UNK
     Route: 048

REACTIONS (4)
  - Akathisia [Unknown]
  - Product use in unapproved indication [Unknown]
  - Hepatic enzyme increased [Recovering/Resolving]
  - Off label use [Unknown]

NARRATIVE: CASE EVENT DATE: 20160429
